FAERS Safety Report 13377617 (Version 1)
Quarter: 2017Q1

REPORT INFORMATION
  Report Type: Report from Study
  Country: US (occurrence: BR)
  Receive Date: 20170328
  Receipt Date: 20170328
  Transmission Date: 20170429
  Serious: Yes (Hospitalization, Other)
  Sender: FDA-Public Use
  Company Number: US-SUNOVION-2017SUN001282

PATIENT
  Sex: Male
  Weight: 70 kg

DRUGS (7)
  1. GLYCOPYRROLATE. [Suspect]
     Active Substance: GLYCOPYRROLATE
     Indication: DYSPNOEA
  2. GLYCOPYRROLATE. [Suspect]
     Active Substance: GLYCOPYRROLATE
     Indication: FATIGUE
     Dosage: 50 UG, BID, (FOR 2 YEARS)
  3. INDACATEROL [Suspect]
     Active Substance: INDACATEROL
     Indication: FATIGUE
     Dosage: 150 MG, (FOR ABOUT 6 MONTHS), UNK
  4. INDACATEROL AND GLYCOPYRROLATE [Suspect]
     Active Substance: GLYCOPYRROLATE\INDACATEROL MALEATE
     Indication: FATIGUE
     Dosage: UNK UNK, QD
     Dates: start: 20170313
  5. ALENIA [Concomitant]
     Active Substance: BUDESONIDE\FORMOTEROL FUMARATE
     Dosage: UNK
  6. INDACATEROL AND GLYCOPYRROLATE [Suspect]
     Active Substance: GLYCOPYRROLATE\INDACATEROL MALEATE
     Indication: DYSPNOEA
  7. INDACATEROL [Suspect]
     Active Substance: INDACATEROL
     Indication: DYSPNOEA

REACTIONS (13)
  - Gastrointestinal carcinoma [Recovered/Resolved]
  - Hernia [Unknown]
  - Hypoacusis [Unknown]
  - Blood cholesterol abnormal [Unknown]
  - Anaemia [Unknown]
  - Product use issue [Unknown]
  - Pain in extremity [Unknown]
  - Confusional state [Unknown]
  - Gait disturbance [Unknown]
  - Drug prescribing error [Unknown]
  - Lung disorder [Recovering/Resolving]
  - Weight increased [Unknown]
  - Fatigue [Unknown]
